FAERS Safety Report 25114111 (Version 1)
Quarter: 2025Q1

REPORT INFORMATION
  Report Type: Spontaneous
  Country: CO (occurrence: CO)
  Receive Date: 20250324
  Receipt Date: 20250324
  Transmission Date: 20250409
  Serious: No
  Sender: PFIZER
  Company Number: CO-PFIZER INC-PV202500032924

PATIENT
  Sex: Male

DRUGS (1)
  1. GENOTROPIN [Suspect]
     Active Substance: SOMATROPIN
     Dosage: 1.4 MG, DAILY

REACTIONS (4)
  - Drug dose omission by device [Unknown]
  - Device information output issue [Unknown]
  - Device mechanical issue [Unknown]
  - Expired device used [Unknown]
